FAERS Safety Report 5616276-9 (Version None)
Quarter: 2008Q1

REPORT INFORMATION
  Report Type: 
  Country: None (occurrence: None)
  Receive Date: 20080204
  Receipt Date: 20080122
  Transmission Date: 20080703
  Serious: Yes (Other)
  Sender: FDA-Public Use
  Company Number: 2008BI000204

PATIENT
  Age: 55 Year
  Sex: Female

DRUGS (1)
  1. AVONEX [Suspect]
     Indication: MULTIPLE SCLEROSIS
     Dosage: 30 UG QW IM
     Route: 030
     Dates: start: 19990101, end: 20071022

REACTIONS (6)
  - METASTASES TO LUNG [None]
  - MULTIPLE SCLEROSIS RELAPSE [None]
  - PLEURAL EFFUSION [None]
  - PYREXIA [None]
  - SARCOMA [None]
  - TRANSAMINASES INCREASED [None]
